FAERS Safety Report 7819998-4 (Version None)
Quarter: 2011Q4

REPORT INFORMATION
  Report Type: 
  Country: None (occurrence: None)
  Receive Date: 20111018
  Receipt Date: 20111013
  Transmission Date: 20120403
  Serious: Yes (Other)
  Sender: FDA-Public Use
  Company Number: BR-PFIZER INC-2010022002

PATIENT
  Age: 50 Year
  Sex: Female
  Weight: 65 kg

DRUGS (12)
  1. VARENICLINE TARTRATE [Suspect]
     Dosage: 1 MG, EVERY 12 HOURS
     Route: 048
     Dates: start: 20100101, end: 20100501
  2. DEPAKENE [Concomitant]
     Indication: DEPRESSION
     Dosage: 2 TABLETS OF 250MG (500MG) AT NIGHT
     Route: 048
     Dates: start: 20050101
  3. VARENICLINE TARTRATE [Suspect]
     Dosage: 0.5 MG, 1X/DAY
     Route: 048
     Dates: start: 20100501, end: 20100101
  4. CLONAZEPAM [Concomitant]
     Indication: DEPRESSION
     Dosage: 2 MG, ONE TABLET IN THE MORNING AND ONE TABLET AT NIGHT
     Route: 048
     Dates: start: 20050101
  5. VARENICLINE TARTRATE [Suspect]
     Dosage: 1 MG, 2X/DAY
     Dates: start: 20100301, end: 20100101
  6. VARENICLINE TARTRATE [Suspect]
     Dosage: 1 MG, EVERY 12 HOURS
     Route: 048
     Dates: start: 20100801, end: 20100101
  7. DEPAKENE [Concomitant]
     Indication: OBSESSIVE-COMPULSIVE DISORDER
  8. SERTRALINE [Concomitant]
     Indication: DEPRESSION
     Dosage: 2 TABLETS OF 50MG IN AFTERNOON, ONCE A DAY
     Route: 048
     Dates: start: 20050101
  9. VARENICLINE TARTRATE [Suspect]
     Dosage: 0.5 MG, 2X/DAY
     Route: 048
     Dates: start: 20110804, end: 20110101
  10. VARENICLINE TARTRATE [Suspect]
     Indication: SMOKING CESSATION THERAPY
     Dosage: 0.5 MG, 1X/DAY
     Route: 048
     Dates: start: 20100212, end: 20100101
  11. VARENICLINE TARTRATE [Suspect]
     Dosage: UNK
     Route: 048
     Dates: start: 20110904
  12. NEULEPTIL [Concomitant]
     Indication: DEPRESSION
     Dosage: 10 DROPS AT NIGHT
     Dates: start: 20050101

REACTIONS (23)
  - NERVOUSNESS [None]
  - DECREASED APPETITE [None]
  - FEELING ABNORMAL [None]
  - ABNORMAL BEHAVIOUR [None]
  - DEPRESSION [None]
  - EMPHYSEMA [None]
  - NAUSEA [None]
  - SUICIDAL IDEATION [None]
  - DEPRESSED MOOD [None]
  - DIZZINESS [None]
  - TREATMENT NONCOMPLIANCE [None]
  - WEIGHT INCREASED [None]
  - FEELING GUILTY [None]
  - GASTRITIS [None]
  - PSYCHIATRIC SYMPTOM [None]
  - FEAR [None]
  - TREMOR [None]
  - TOBACCO USER [None]
  - ABNORMAL DREAMS [None]
  - PERIPHERAL COLDNESS [None]
  - CRYING [None]
  - HEART RATE INCREASED [None]
  - DYSGEUSIA [None]
